FAERS Safety Report 23807047 (Version 2)
Quarter: 2024Q2

REPORT INFORMATION
  Report Type: Report from Study
  Country: US (occurrence: None)
  Receive Date: 20240502
  Receipt Date: 20240528
  Transmission Date: 20240715
  Serious: Yes (Other)
  Sender: FDA-Public Use
  Company Number: 2024A099490

PATIENT
  Sex: Male
  Weight: 108.9 kg

DRUGS (1)
  1. TAGRISSO [Suspect]
     Active Substance: OSIMERTINIB
     Indication: Non-small cell lung cancer stage IV
     Route: 048
     Dates: start: 20240308

REACTIONS (3)
  - Pneumonia [Unknown]
  - Thrombosis [Unknown]
  - Bronchitis [Unknown]
